FAERS Safety Report 7393846-1 (Version None)
Quarter: 2011Q1

REPORT INFORMATION
  Report Type: 
  Country: None (occurrence: None)
  Receive Date: 20110330
  Receipt Date: 20110330
  Transmission Date: 20110831
  Serious: Yes (Other)
  Sender: FDA-Public Use
  Company Number: None

PATIENT
  Age: 60 Year
  Sex: Male
  Weight: 64.8644 kg

DRUGS (2)
  1. SANDIMMUNE [Suspect]
     Dosage: 150MG DAILY PO
     Route: 048
  2. MYFORTIC [Suspect]
     Indication: RENAL AND PANCREAS TRANSPLANT
     Dosage: 720MG DAILY PO
     Route: 048

REACTIONS (6)
  - MUSCLE SPASTICITY [None]
  - CEREBROVASCULAR ACCIDENT [None]
  - SPINAL CORD INJURY CERVICAL [None]
  - CSF TEST ABNORMAL [None]
  - ASTHENIA [None]
  - MULTIPLE SCLEROSIS [None]
